FAERS Safety Report 18747391 (Version 2)
Quarter: 2021Q2

REPORT INFORMATION
  Report Type: Report from Study
  Country: CA (occurrence: CA)
  Receive Date: 20210115
  Receipt Date: 20210520
  Transmission Date: 20210717
  Serious: Yes (Hospitalization, Other)
  Sender: FDA-Public Use
  Company Number: CA-TAKEDA-SPV1-2009-00698

PATIENT
  Age: 11 Year
  Sex: Male
  Weight: 27.6 kg

DRUGS (14)
  1. FLONASE [Concomitant]
     Active Substance: FLUTICASONE PROPIONATE
     Dosage: 50 UG, 2X/DAY:BID
     Dates: start: 2007
  2. IDURSULFASE [Suspect]
     Active Substance: IDURSULFASE
     Indication: MUCOPOLYSACCHARIDOSIS II
     Dosage: 0.5 MILLIGRAM/KILOGRAM, 1X/WEEK
     Route: 041
     Dates: start: 20080813
  3. SALBUTAMOL [Concomitant]
     Active Substance: ALBUTEROL
     Dates: start: 2005
  4. ZANTAC [Concomitant]
     Active Substance: RANITIDINE HYDROCHLORIDE
     Dosage: 30 MG, 1X/DAY:QD
     Dates: start: 2006
  5. METHYLPREDNISOLONE. [Concomitant]
     Active Substance: METHYLPREDNISOLONE
     Dosage: 40 MG, UNK
     Dates: start: 20081126
  6. TEGRETOL [Concomitant]
     Active Substance: CARBAMAZEPINE
     Dosage: 120 MG, 2X/DAY:BID
     Dates: start: 20070514
  7. MELATONIN [Concomitant]
     Active Substance: MELATONIN
     Indication: SLEEP DISORDER
     Dosage: 2 MG, 1X/DAY:QD
     Dates: start: 200803
  8. METHYLPREDNISOLONE. [Concomitant]
     Active Substance: METHYLPREDNISOLONE
     Indication: PREMEDICATION
     Dosage: 30 MG, UNK
     Dates: start: 20081008, end: 20081126
  9. DIPHENHYDRAMINE. [Concomitant]
     Active Substance: DIPHENHYDRAMINE
     Indication: PREMEDICATION
     Dosage: 37.5 MG, PRN
     Dates: start: 20081001
  10. PARACETAMOL [Concomitant]
     Active Substance: ACETAMINOPHEN
     Dosage: 350 MG, UNK
     Dates: start: 20080911
  11. FLONASE [Concomitant]
     Active Substance: FLUTICASONE PROPIONATE
     Dosage: 125 UG, 2X/DAY:BID
     Dates: start: 2005, end: 2007
  12. PULMICORT TURBUHALER [Concomitant]
     Active Substance: BUDESONIDE
     Dosage: 1 MG, 2X/DAY:BID
     Dates: start: 2008
  13. SALBUTAMOL [Concomitant]
     Active Substance: ALBUTEROL
     Indication: PREMEDICATION
     Dosage: .9 ML, PRN
     Dates: start: 20080813
  14. PARACETAMOL [Concomitant]
     Active Substance: ACETAMINOPHEN
     Indication: PREMEDICATION
     Dosage: 450 MG, PRN
     Dates: start: 20080813, end: 20080911

REACTIONS (3)
  - Hydrocephalus [Recovered/Resolved]
  - Pneumonia [Recovered/Resolved]
  - Vascular device infection [Recovered/Resolved]

NARRATIVE: CASE EVENT DATE: 20081223
